FAERS Safety Report 5988923-3 (Version None)
Quarter: 2008Q4

REPORT INFORMATION
  Report Type: 
  Country: None (occurrence: None)
  Receive Date: 20081210
  Receipt Date: 20081203
  Transmission Date: 20090506
  Serious: Yes (Death)
  Sender: FDA-Public Use
  Company Number: US-JNJFOC-20070102669

PATIENT
  Sex: Female
  Weight: 81.65 kg

DRUGS (10)
  1. DURAGESIC-100 [Suspect]
     Route: 062
  2. DURAGESIC-100 [Suspect]
     Route: 062
  3. DURAGESIC-100 [Suspect]
     Route: 062
  4. DURAGESIC-100 [Suspect]
     Indication: PAIN
     Route: 062
  5. VANCOMYCIN [Concomitant]
     Route: 041
  6. AMITRIPTYLINE HCL [Concomitant]
  7. LOVENOX [Concomitant]
     Route: 058
  8. XANAX [Concomitant]
     Route: 048
  9. NIZORAL [Concomitant]
  10. VORICONAZOLE [Concomitant]
     Route: 048

REACTIONS (2)
  - DEVICE FAILURE [None]
  - DRUG TOXICITY [None]
